FAERS Safety Report 16263343 (Version 2)
Quarter: 2019Q3

REPORT INFORMATION
  Report Type: Spontaneous
  Country: US (occurrence: US)
  Receive Date: 20190502
  Receipt Date: 20190710
  Transmission Date: 20191004
  Serious: No
  Sender: FDA-Public Use
  Company Number: US-TEVA-2019-US-1045191

PATIENT
  Age: 82 Year
  Sex: Female

DRUGS (1)
  1. PROAIR HFA [Suspect]
     Active Substance: ALBUTEROL SULFATE
     Dates: start: 2019

REACTIONS (3)
  - Drug ineffective [Unknown]
  - Product residue present [Unknown]
  - Device issue [Unknown]

NARRATIVE: CASE EVENT DATE: 2019
